FAERS Safety Report 22522356 (Version 1)
Quarter: 2023Q2

REPORT INFORMATION
  Report Type: Spontaneous
  Country: KR (occurrence: KR)
  Receive Date: 20230605
  Receipt Date: 20230605
  Transmission Date: 20230721
  Serious: Yes (Hospitalization, Other)
  Sender: FDA-Public Use
  Company Number: KR-ORGANON-O2305KOR003201

PATIENT
  Age: 61 Year
  Sex: Male
  Weight: 61.8 kg

DRUGS (4)
  1. COZAAR [Suspect]
     Active Substance: LOSARTAN POTASSIUM
     Indication: Essential hypertension
     Dosage: 50 MILLIGRAM, 1 DAY
     Route: 048
     Dates: start: 20190106
  2. ETANERCEPT [Suspect]
     Active Substance: ETANERCEPT
     Indication: Rheumatoid arthritis
     Dosage: 50 MILLIGRAM, 1 WEEK, SOLUTION INJECTION
     Route: 058
     Dates: start: 20190613, end: 20190615
  3. MEROPENEM [Suspect]
     Active Substance: MEROPENEM
     Dosage: 1 GRAM, 0.33 DAY, INJECTABLES, UNCLASSIFIED, ROUTE: VEIN
     Route: 042
     Dates: start: 20190608, end: 20190617
  4. LEFLUNOMIDE [Concomitant]
     Active Substance: LEFLUNOMIDE
     Indication: Rheumatoid arthritis
     Dosage: 10 MILLIGRAM, 1 DAY
     Route: 048
     Dates: start: 20190606

REACTIONS (1)
  - Drug reaction with eosinophilia and systemic symptoms [Recovered/Resolved]

NARRATIVE: CASE EVENT DATE: 20190614
